FAERS Safety Report 7450328-6 (Version None)
Quarter: 2011Q2

REPORT INFORMATION
  Report Type: 
  Country: None (occurrence: None)
  Receive Date: 20110502
  Receipt Date: 20110421
  Transmission Date: 20111010
  Serious: Yes (Hospitalization)
  Sender: FDA-Public Use
  Company Number: JP-SANOFI-AVENTIS-2011SA025784

PATIENT
  Sex: Female

DRUGS (1)
  1. MYSLEE [Suspect]
     Route: 048

REACTIONS (3)
  - OVERDOSE [None]
  - PYRAMIDAL TRACT SYNDROME [None]
  - COMA [None]
